FAERS Safety Report 18313984 (Version 1)
Quarter: 2020Q3

REPORT INFORMATION
  Report Type: Report from Study
  Country: US (occurrence: US)
  Receive Date: 20200925
  Receipt Date: 20200925
  Transmission Date: 20201103
  Serious: Yes (Other)
  Sender: FDA-Public Use
  Company Number: US-JNJFOC-20200930699

PATIENT
  Age: 32 Year
  Sex: Male

DRUGS (1)
  1. SPRAVATO [Suspect]
     Active Substance: ESKETAMINE
     Indication: DEPRESSION
     Dates: start: 20200915

REACTIONS (4)
  - Sedation [Recovered/Resolved]
  - Dissociation [Recovered/Resolved]
  - Nausea [Recovered/Resolved]
  - Hypoaesthesia oral [Recovered/Resolved]

NARRATIVE: CASE EVENT DATE: 20200915
